FAERS Safety Report 6140013-5 (Version None)
Quarter: 2009Q1

REPORT INFORMATION
  Report Type: 
  Country: None (occurrence: None)
  Receive Date: 20090330
  Receipt Date: 20090330
  Transmission Date: 20090719
  Serious: No
  Sender: FDA-Public Use
  Company Number: None

PATIENT
  Age: 77 Year
  Sex: Female
  Weight: 89.8122 kg

DRUGS (1)
  1. CYCLOSPORINE [Suspect]
     Indication: LICHEN PLANUS
     Dosage: 5ML/DAY/ORALLY
     Route: 048

REACTIONS (2)
  - DRUG INTOLERANCE [None]
  - ORAL PAIN [None]
